FAERS Safety Report 4839034-1 (Version None)
Quarter: 2005Q4

REPORT INFORMATION
  Report Type: 
  Country: None (occurrence: None)
  Receive Date: 20051024
  Receipt Date: 20050902
  Transmission Date: 20060501
  Serious: Yes (Other)
  Sender: FDA-Public Use
  Company Number: 215693

PATIENT
  Age: 51 Year
  Sex: Male
  Weight: 78 kg

DRUGS (4)
  1. XOLAIR [Suspect]
     Indication: ASTHMA
     Dosage: 375 MG,Q2W, SUBCUTANEOUS
     Route: 058
     Dates: start: 20050401, end: 20050628
  2. FLOVENT [Concomitant]
  3. ADVAIR DISKUS 100/50 [Concomitant]
  4. PREDNISONE [Concomitant]

REACTIONS (4)
  - DIZZINESS [None]
  - HEADACHE [None]
  - HYPERSENSITIVITY [None]
  - RASH [None]
